FAERS Safety Report 20791588 (Version 1)
Quarter: 2022Q2

REPORT INFORMATION
  Report Type: Spontaneous
  Country: US (occurrence: US)
  Receive Date: 20220505
  Receipt Date: 20220505
  Transmission Date: 20220721
  Serious: No
  Sender: FDA-Public Use
  Company Number: US-PFIZER INC-202101246076

PATIENT
  Age: 74 Year
  Sex: Female

DRUGS (1)
  1. XELJANZ XR [Suspect]
     Active Substance: TOFACITINIB CITRATE
     Dosage: 11 MG
     Dates: start: 20210902

REACTIONS (9)
  - Myalgia [Unknown]
  - Arthralgia [Unknown]
  - Gait disturbance [Unknown]
  - Pain in extremity [Unknown]
  - Faeces discoloured [Unknown]
  - Diarrhoea [Unknown]
  - Burning sensation [Unknown]
  - Walking aid user [Unknown]
  - Product dose omission issue [Unknown]

NARRATIVE: CASE EVENT DATE: 20210901
